FAERS Safety Report 7814959-3 (Version None)
Quarter: 2011Q4

REPORT INFORMATION
  Report Type: 
  Country: None (occurrence: None)
  Receive Date: 20111014
  Receipt Date: 20111011
  Transmission Date: 20120403
  Serious: Yes (Death, Hospitalization)
  Sender: FDA-Public Use
  Company Number: MX-SANOFI-AVENTIS-2011SA066794

PATIENT
  Age: 96 Year
  Sex: Male
  Weight: 87 kg

DRUGS (3)
  1. LOSARTAN POTASSIUM [Concomitant]
     Route: 048
     Dates: end: 20110908
  2. PLAVIX [Suspect]
     Indication: THROMBOSIS PROPHYLAXIS
     Route: 048
     Dates: start: 20070101, end: 20110820
  3. TRENTAL [Concomitant]
     Route: 048
     Dates: end: 20110908

REACTIONS (4)
  - PNEUMONIA [None]
  - HEMIPLEGIA [None]
  - ISCHAEMIC STROKE [None]
  - DISEASE COMPLICATION [None]
